FAERS Safety Report 20059979 (Version 1)
Quarter: 2021Q4

REPORT INFORMATION
  Report Type: Spontaneous
  Country: None (occurrence: US)
  Receive Date: 20211111
  Receipt Date: 20211111
  Transmission Date: 20220303
  Serious: No
  Sender: FDA-Public Use
  Company Number: US-Amphastar Pharmaceuticals, Inc.-2121773

PATIENT

DRUGS (2)
  1. GLUCAGON [Suspect]
     Active Substance: GLUCAGON
  2. DEVICE [Suspect]
     Active Substance: DEVICE

REACTIONS (1)
  - No adverse event [None]
